FAERS Safety Report 5806769-3 (Version None)
Quarter: 2008Q3

REPORT INFORMATION
  Report Type: 
  Country: None (occurrence: None)
  Receive Date: 20080709
  Receipt Date: 20080709
  Transmission Date: 20090109
  Serious: Yes (Death)
  Sender: FDA-Public Use
  Company Number: None

PATIENT
  Sex: Female
  Weight: 2.268 kg

DRUGS (2)
  1. LEXAPRO [Suspect]
     Indication: ANXIETY
     Dosage: 20 MG DAILY PO
     Route: 048
     Dates: start: 20070706, end: 20070718
  2. ALBUTEROL [Suspect]
     Indication: UPPER RESPIRATORY TRACT INFECTION
     Dosage: 2 PUFFS EVERY 4 HR/AS NEEDED PO
     Route: 055

REACTIONS (8)
  - BALANCE DISORDER [None]
  - CONGENITAL ANOMALY [None]
  - DIZZINESS [None]
  - FEELING ABNORMAL [None]
  - HOLOPROSENCEPHALY [None]
  - MATERNAL DRUGS AFFECTING FOETUS [None]
  - PREGNANCY [None]
  - VISION BLURRED [None]
